FAERS Safety Report 19051134 (Version 2)
Quarter: 2022Q2

REPORT INFORMATION
  Report Type: Spontaneous
  Country: PL (occurrence: PL)
  Receive Date: 20210324
  Receipt Date: 20220415
  Transmission Date: 20220721
  Serious: Yes (Other)
  Sender: FDA-Public Use
  Company Number: PL-AMGEN-POLSP2021043540

PATIENT
  Age: 63 Year
  Sex: Female

DRUGS (5)
  1. KYPROLIS [Suspect]
     Active Substance: CARFILZOMIB
     Indication: Plasma cell myeloma
     Dosage: UNK
     Route: 065
     Dates: start: 202004
  2. ARANESP [Suspect]
     Active Substance: DARBEPOETIN ALFA
     Indication: Plasma cell myeloma
     Dosage: UNK
     Route: 065
  3. REVLIMID [Concomitant]
     Active Substance: LENALIDOMIDE
     Dosage: UNK
     Dates: start: 202004
  4. DEXAMETHASONE [Concomitant]
     Active Substance: DEXAMETHASONE
     Dosage: UNK
     Dates: start: 202004
  5. LENALIDOMIDE [Concomitant]
     Active Substance: LENALIDOMIDE

REACTIONS (6)
  - Polyneuropathy [Unknown]
  - Therapy partial responder [Unknown]
  - Weight increased [Unknown]
  - Herpes zoster [Unknown]
  - Anaemia [Unknown]
  - Oedema peripheral [Unknown]
